FAERS Safety Report 10023533 (Version 1)
Quarter: 2014Q1

REPORT INFORMATION
  Report Type: Spontaneous
  Country: US (occurrence: None)
  Receive Date: 20140319
  Receipt Date: 20140319
  Transmission Date: 20141002
  Serious: Yes (Disabling)
  Sender: FDA-Public Use
  Company Number: None

PATIENT
  Age: 59 Year
  Sex: Female
  Weight: 69.85 kg

DRUGS (7)
  1. ANASTROZOLE [Suspect]
     Indication: BREAST CANCER
     Dosage: 1 PILL
     Route: 048
     Dates: start: 20120630, end: 20140318
  2. ANASTROZOLE [Suspect]
     Indication: PROPHYLAXIS
     Dosage: 1 PILL
     Route: 048
     Dates: start: 20120630, end: 20140318
  3. BUPROPION XL [Concomitant]
  4. SUMATRIPTAN [Concomitant]
  5. PRESERVISION AREDS [Concomitant]
  6. WELL A THRU Z SELECT VITAMINS [Concomitant]
  7. WELL STOOL SOFTENER [Concomitant]

REACTIONS (2)
  - Age-related macular degeneration [None]
  - Age-related macular degeneration [None]
